FAERS Safety Report 6508792-2 (Version None)
Quarter: 2009Q4

REPORT INFORMATION
  Report Type: 
  Country: None (occurrence: None)
  Receive Date: 20091221
  Receipt Date: 20091218
  Transmission Date: 20100525
  Serious: Yes (Hospitalization, Other)
  Sender: FDA-Public Use
  Company Number: TR-BAXTER-2009BH019498

PATIENT
  Age: 49 Year
  Sex: Male

DRUGS (2)
  1. RECOMBINANT FACTOR VIII, UNSPECIFIED [Suspect]
     Indication: HAEMORRHAGE PROPHYLAXIS
     Dosage: DOSE UNIT:UNITS PER KILOGRAM
     Route: 042
  2. TRANEXAMIC ACID [Suspect]
     Indication: HAEMORRHAGE PROPHYLAXIS
     Route: 048

REACTIONS (1)
  - ACUTE MYOCARDIAL INFARCTION [None]
